FAERS Safety Report 5871178-8 (Version None)
Quarter: 2008Q3

REPORT INFORMATION
  Report Type: 
  Country: None (occurrence: None)
  Receive Date: 20080904
  Receipt Date: 20080904
  Transmission Date: 20090109
  Serious: Yes (Life-Threatening, Hospitalization)
  Sender: FDA-Public Use
  Company Number: SE-ABBOTT-08P-150-0471812-00

PATIENT
  Age: 59 Year
  Sex: Female

DRUGS (4)
  1. ZEMPLAR [Suspect]
     Indication: HYPERPARATHYROIDISM
     Route: 050
     Dates: start: 20080312, end: 20080725
  2. DIAZEPAM [Concomitant]
     Indication: DIALYSIS
  3. FLOXACILLIN SODIUM [Concomitant]
     Indication: KERATOPLASTY
  4. ENOXAPARIN SODIUM [Concomitant]
     Indication: DRUG USE FOR UNKNOWN INDICATION

REACTIONS (10)
  - BLOOD ALBUMIN DECREASED [None]
  - BLOOD CALCIUM DECREASED [None]
  - BLOOD CREATININE INCREASED [None]
  - C-REACTIVE PROTEIN INCREASED [None]
  - CEREBRAL INFARCTION [None]
  - FATIGUE [None]
  - HYPONATRAEMIA [None]
  - LEUKOCYTOSIS [None]
  - OXYGEN SATURATION DECREASED [None]
  - TROPONIN T INCREASED [None]
